FAERS Safety Report 8473837 (Version 2)
Quarter: 2012Q4

REPORT INFORMATION
  Report Type: 
  Country: US (occurrence: US)
  Receive Date: 20120323
  Receipt Date: 20120913
  Transmission Date: 20130627
  Serious: Yes (Hospitalization, Other)
  Sender: FDA-Public Use
  Company Number: US-BAYER-2012-026538

PATIENT
  Age: 20 Year
  Sex: Female
  Weight: 86.17 kg

DRUGS (14)
  1. YAZ [Suspect]
     Indication: ACNE
     Dosage: UNK
     Dates: start: 2008, end: 200904
  2. YAZ [Suspect]
     Indication: MENSTRUATION IRREGULAR
  3. YASMIN [Suspect]
     Indication: ACNE
     Dosage: UNK
     Dates: start: 2008, end: 200904
  4. YASMIN [Suspect]
     Indication: MENSTRUATION IRREGULAR
  5. BACTRIM [Concomitant]
     Dosage: 160-800mg
     Route: 048
     Dates: start: 20090324
  6. REGLAN [Concomitant]
     Dosage: 10 mg, UNK
     Route: 042
     Dates: start: 20090414
  7. PROTONIX [Concomitant]
     Dosage: 40 mg, UNK
     Route: 042
     Dates: start: 20090414
  8. TORADOL [Concomitant]
     Dosage: 30 mg, UNK
     Route: 042
     Dates: start: 20090414
  9. MORPHINE SULFATE [Concomitant]
     Dosage: 4 mg, UNK
     Route: 042
     Dates: start: 20090414
  10. FLAGYL [Concomitant]
     Dosage: 500 mg, UNK
     Route: 048
     Dates: start: 20090417
  11. IBUPROFEN [Concomitant]
     Dosage: 800 mg, UNK
     Route: 048
     Dates: start: 20090417
  12. TERAZOL [Concomitant]
     Dosage: 0.8%
     Route: 067
     Dates: start: 20090417
  13. ULTRAM [Concomitant]
     Dosage: 50 mg, UNK
     Route: 048
     Dates: start: 20090417
  14. PERCOCET [Concomitant]

REACTIONS (11)
  - Cholecystitis chronic [None]
  - Cholelithiasis [None]
  - Liver function test abnormal [None]
  - Disability [None]
  - Biliary dilatation [None]
  - Abdominal pain [None]
  - Pain [None]
  - Injury [None]
  - Deformity [None]
  - Anxiety [None]
  - Anhedonia [None]
